FAERS Safety Report 6343894-5 (Version None)
Quarter: 2009Q3

REPORT INFORMATION
  Report Type: 
  Country: None (occurrence: None)
  Receive Date: 20090908
  Receipt Date: 20090825
  Transmission Date: 20100115
  Serious: Yes (Death)
  Sender: FDA-Public Use
  Company Number: JP-PFIZER INC-2009232879

PATIENT
  Age: 73 Year

DRUGS (25)
  1. ARGATROBAN [Suspect]
     Indication: HEPARIN-INDUCED THROMBOCYTOPENIA
     Dosage: 0.7 MCG/KG/MIN (0.7 UG/KG,1 IN 1 MIN)
     Route: 041
     Dates: start: 20090307, end: 20090308
  2. HEPARIN SODIUM [Concomitant]
     Dosage: UNK
     Route: 051
     Dates: start: 20090303
  3. DOPAMINE [Concomitant]
     Indication: SHOCK
     Dosage: UNK
     Route: 042
     Dates: start: 20090303, end: 20090309
  4. HUMULIN R [Concomitant]
     Indication: DIABETES MELLITUS
     Dosage: UNK
     Route: 042
     Dates: start: 20090303, end: 20090304
  5. HUMULIN R [Concomitant]
     Dosage: UNK
     Route: 042
     Dates: start: 20090305, end: 20090309
  6. NITROGLYCERIN [Concomitant]
     Dosage: UNK
     Route: 042
     Dates: start: 20090303, end: 20090309
  7. VICCILLIN-S [Concomitant]
     Indication: PROPHYLAXIS
     Dosage: UNK
     Route: 042
     Dates: start: 20090303, end: 20090309
  8. LIPLE [Concomitant]
     Indication: ARTERIOSCLEROSIS OBLITERANS
     Dosage: 10 MCG
     Route: 042
     Dates: start: 20090303, end: 20090309
  9. PANTOL [Concomitant]
     Dosage: UNK
     Route: 042
     Dates: start: 20090303, end: 20090309
  10. MAGNESIUM SULFATE [Concomitant]
     Dosage: UNK
     Route: 042
     Dates: start: 20090303, end: 20090309
  11. FLAVITAN [Concomitant]
     Dosage: UNK
     Route: 042
     Dates: start: 20090303, end: 20090309
  12. HANP [Concomitant]
     Indication: SHOCK
     Dosage: 500 MCG
     Route: 042
     Dates: start: 20090304, end: 20090309
  13. ELASPOL [Concomitant]
     Indication: LUNG DISORDER
     Dosage: UNK
     Route: 042
     Dates: start: 20090304, end: 20090309
  14. PROPOFOL [Concomitant]
     Dosage: UNK
     Route: 042
     Dates: start: 20090304, end: 20090309
  15. NICARPINE [Concomitant]
     Indication: HYPERTENSION
     Dosage: UNK
     Route: 042
     Dates: start: 20090304, end: 20090309
  16. MARZULENE S [Concomitant]
     Indication: PROPHYLAXIS
     Dosage: UNK
     Route: 048
     Dates: start: 20090304, end: 20090309
  17. ASPIRIN [Concomitant]
     Indication: ARTERIOSCLEROSIS OBLITERANS
     Dosage: UNK
     Route: 048
     Dates: start: 20090304, end: 20090309
  18. ENTERONON R [Concomitant]
     Indication: PROPHYLAXIS
     Dosage: UNK
     Route: 048
     Dates: start: 20090304, end: 20090309
  19. FOY [Concomitant]
     Indication: DISSEMINATED INTRAVASCULAR COAGULATION
     Dosage: UNK
     Route: 042
     Dates: start: 20090305, end: 20090309
  20. HICALIQ [Concomitant]
     Dosage: UNK
     Route: 042
     Dates: start: 20090305, end: 20090309
  21. AMINO ACIDS [Concomitant]
     Dosage: UNK
     Route: 042
     Dates: start: 20090305, end: 20090309
  22. VITAJECT [Concomitant]
     Dosage: 1 DF, UNK
     Route: 042
     Dates: start: 20090305, end: 20090309
  23. ELEMENMIC [Concomitant]
     Dosage: 1 DF, UNK
     Route: 042
     Dates: start: 20090305, end: 20090309
  24. SAXIZON [Concomitant]
     Indication: ADRENAL INSUFFICIENCY
     Dosage: UNK
     Route: 042
     Dates: start: 20090307, end: 20090309
  25. TAKEPRON [Concomitant]
     Indication: REFLUX OESOPHAGITIS
     Dosage: UNK
     Route: 048
     Dates: start: 20090307, end: 20090309

REACTIONS (1)
  - NO ADVERSE EVENT [None]
